FAERS Safety Report 6080618-3 (Version None)
Quarter: 2009Q1

REPORT INFORMATION
  Report Type: 
  Country: None (occurrence: None)
  Receive Date: 20090217
  Receipt Date: 20090204
  Transmission Date: 20090719
  Serious: Yes (Disabling)
  Sender: FDA-Public Use
  Company Number: SE-AMGEN-US260341

PATIENT
  Sex: Female

DRUGS (11)
  1. ENBREL [Suspect]
     Indication: RHEUMATOID ARTHRITIS
     Dates: start: 20060320
  2. ENBREL [Suspect]
     Dates: start: 20060101, end: 20071101
  3. ENBREL [Suspect]
     Dates: start: 20071101, end: 20080601
  4. IPREN [Concomitant]
     Dosage: WHEN NEEDED
  5. ACETAMINOPHEN [Concomitant]
     Dosage: WHEN NEEDED
  6. RHINOCORT [Concomitant]
     Dosage: WHEN NEEDED
  7. INDERAL [Concomitant]
     Dosage: WHEN NEEDED
  8. CALCICHEW-D3 [Concomitant]
     Dosage: 1 X 2
  9. ORUDIS - SLOW RELEASE [Concomitant]
     Dosage: WHEN NEEDED
  10. VISCOTEARS [Concomitant]
     Dosage: WHEN NEEDED
     Route: 001
  11. CETOMACROGOL/CETOSTEARYL ALCOHOL/PARAFFIN, LIQUID/WHITE SOFT PARAFFIN [Concomitant]

REACTIONS (7)
  - BLEPHAROSPASM [None]
  - CONDITION AGGRAVATED [None]
  - EYE IRRITATION [None]
  - IRITIS [None]
  - KERATOCONJUNCTIVITIS SICCA [None]
  - PHOTOSENSITIVITY REACTION [None]
  - VISUAL ACUITY REDUCED [None]
